FAERS Safety Report 5165316-2 (Version None)
Quarter: 2006Q4

REPORT INFORMATION
  Report Type: 
  Country: None (occurrence: None)
  Receive Date: 20061206
  Receipt Date: 20061130
  Transmission Date: 20070319
  Serious: Yes (Hospitalization)
  Sender: FDA-Public Use
  Company Number: CA-SP-2006-03307

PATIENT
  Age: 12 Year
  Sex: Male

DRUGS (6)
  1. INACTIVATED HUMAN RABIES VACCINE MERIEUX [Suspect]
     Indication: ACCIDENTAL EXPOSURE
     Dosage: 5 DOSES OF 1 ML
     Route: 030
     Dates: start: 20061123
  2. INACTIVATED HUMAN RABIES VACCINE MERIEUX [Suspect]
     Dosage: 5 DOSES OF 1 ML
     Route: 030
     Dates: start: 20061123
  3. INACTIVATED HUMAN RABIES VACCINE MERIEUX [Suspect]
     Dosage: 5 DOSES OF 1 ML
     Route: 030
     Dates: start: 20061123
  4. INACTIVATED HUMAN RABIES VACCINE MERIEUX [Suspect]
     Dosage: 5 DOSES OF 1 ML
     Route: 030
     Dates: start: 20061123
  5. IMOGAM RABIES [Suspect]
     Indication: ACCIDENTAL EXPOSURE
     Dosage: 1 VIAL
     Route: 030
     Dates: start: 20061123
  6. IMOGAM RABIES [Suspect]
     Dosage: 1 VIAL
     Route: 030
     Dates: start: 20061123

REACTIONS (12)
  - ANOREXIA [None]
  - CHILLS [None]
  - DELIRIUM [None]
  - DISORIENTATION [None]
  - EYE DISORDER [None]
  - FEELING COLD [None]
  - HEADACHE [None]
  - HYPERHIDROSIS [None]
  - INCORRECT ROUTE OF DRUG ADMINISTRATION [None]
  - MEDICATION ERROR [None]
  - PYREXIA [None]
  - TREMOR [None]
